FAERS Safety Report 14249126 (Version 7)
Quarter: 2019Q1

REPORT INFORMATION
  Report Type: Spontaneous
  Country: CA (occurrence: CA)
  Receive Date: 20171204
  Receipt Date: 20190206
  Transmission Date: 20190417
  Serious: Yes (Other)
  Sender: FDA-Public Use
  Company Number: CA-PFIZER INC-2017212184

PATIENT
  Age: 72 Year
  Sex: Female

DRUGS (10)
  1. PANTOPRAZOLE SODIUM. [Concomitant]
     Active Substance: PANTOPRAZOLE SODIUM
     Dosage: 40 MG, DAILY
  2. IBRANCE [Suspect]
     Active Substance: PALBOCICLIB
     Dosage: 100MG, CYCLIC (FOR 21 DAYS ON/28 DAYS)
     Route: 048
  3. ANASTRAZOLE DENK [Concomitant]
     Active Substance: ANASTROZOLE
     Dosage: 1MG, QD (EVERY DAY)
  4. IBRANCE [Suspect]
     Active Substance: PALBOCICLIB
     Dosage: 125 MG, CYCLIC (21 DAYS ON, 7 DAYS OFF)
     Route: 048
     Dates: start: 20170131, end: 2017
  5. VITAMIN C [Concomitant]
     Active Substance: ASCORBIC ACID
     Dosage: 250 MG, UNK
  6. MULTIVITAMIN [ASCORBIC ACID;CALCIUM PANTOTHENATE;ERGOCALCIFEROL;NICOTI [Concomitant]
     Active Substance: VITAMINS
     Dosage: UNK
  7. GLUCOSAMINE [Concomitant]
     Active Substance: GLUCOSAMINE
     Dosage: 1000 MG, UNK
  8. IBRANCE [Suspect]
     Active Substance: PALBOCICLIB
     Dosage: 75MG, CYCLIC (FOR 21 DAYS ON/28 DAYS)
     Route: 048
  9. IBRANCE [Suspect]
     Active Substance: PALBOCICLIB
     Dosage: 100MG, CYCLIC(FOR 21 DAYS ON/28 DAYS)
     Route: 048
  10. LETROZOLE. [Concomitant]
     Active Substance: LETROZOLE
     Dosage: UNK

REACTIONS (8)
  - Transient ischaemic attack [Unknown]
  - Blindness [Recovered/Resolved]
  - Photopsia [Unknown]
  - Cough [Unknown]
  - Ocular vascular disorder [Unknown]
  - Vision blurred [Unknown]
  - Aphonia [Unknown]
  - Neoplasm progression [Unknown]

NARRATIVE: CASE EVENT DATE: 20171124
